FAERS Safety Report 10269075 (Version 2)
Quarter: 2014Q2

REPORT INFORMATION
  Report Type: Report from Study
  Country: CA (occurrence: CA)
  Receive Date: 20140630
  Receipt Date: 20140630
  Transmission Date: 20141212
  Serious: Yes (Hospitalization)
  Sender: FDA-Public Use
  Company Number: CA-ABBVIE-14P-028-1251285-00

PATIENT
  Age: 3 Year
  Sex: Male
  Weight: 18.1 kg

DRUGS (5)
  1. HUMIRA [Suspect]
     Indication: PRODUCT USED FOR UNKNOWN INDICATION
     Route: 058
     Dates: start: 20140605, end: 20140605
  2. HUMIRA [Suspect]
     Dosage: SECOND INDUCTION DOSE
     Route: 058
     Dates: start: 20140614
  3. METHYLPREDNIS [Concomitant]
     Indication: COLITIS
     Route: 048
     Dates: end: 20140623
  4. AZATHIOPRINE [Concomitant]
     Indication: PRODUCT USED FOR UNKNOWN INDICATION
     Route: 048
     Dates: start: 20140311, end: 20140607
  5. PENTASA [Concomitant]
     Indication: COLITIS
     Route: 048

REACTIONS (9)
  - Colitis [Recovered/Resolved]
  - Large intestinal haemorrhage [Not Recovered/Not Resolved]
  - Condition aggravated [Not Recovered/Not Resolved]
  - Malaise [Not Recovered/Not Resolved]
  - Pallor [Not Recovered/Not Resolved]
  - Malaise [Not Recovered/Not Resolved]
  - Rectal haemorrhage [Unknown]
  - Diarrhoea [Unknown]
  - Drug ineffective [Not Recovered/Not Resolved]
